FAERS Safety Report 25413043 (Version 1)
Quarter: 2025Q2

REPORT INFORMATION
  Report Type: Spontaneous
  Country: US (occurrence: US)
  Receive Date: 20250609
  Receipt Date: 20250609
  Transmission Date: 20250716
  Serious: Yes (Hospitalization)
  Sender: XERIS PHARMACEUTICALS
  Company Number: US-BRIAN CONNER SVP QUALITY AND CHIEF COMPLIANCE OFFICER-2025XER00339

PATIENT
  Age: 60 Year
  Sex: Male
  Weight: 108.84 kg

DRUGS (6)
  1. KEVEYIS [Suspect]
     Active Substance: DICHLORPHENAMIDE
     Indication: Paralysis
     Dosage: 50 MG, 2X/DAY
     Dates: start: 20250501, end: 202505
  2. KEVEYIS [Suspect]
     Active Substance: DICHLORPHENAMIDE
     Dosage: 25 MG, 1X/DAY
     Dates: start: 202505, end: 202505
  3. KEVEYIS [Suspect]
     Active Substance: DICHLORPHENAMIDE
     Dosage: 50 MG, 1X/DAY
     Dates: start: 202505
  4. PLAVIX [Suspect]
     Active Substance: CLOPIDOGREL BISULFATE
  5. UNSPECIFIED INGREDIENT [Suspect]
     Active Substance: UNSPECIFIED INGREDIENT
  6. UNSPECIFIED INGREDIENT [Concomitant]
     Active Substance: UNSPECIFIED INGREDIENT

REACTIONS (15)
  - Hypotension [Unknown]
  - Limb discomfort [Recovered/Resolved]
  - Night sweats [Recovered/Resolved]
  - Illness [Recovering/Resolving]
  - Insomnia [Recovering/Resolving]
  - Middle insomnia [Recovering/Resolving]
  - Aphasia [Recovering/Resolving]
  - Contusion [Unknown]
  - Paraesthesia [Recovered/Resolved]
  - Decreased appetite [Recovered/Resolved]
  - Taste disorder [Recovered/Resolved]
  - Fatigue [Recovering/Resolving]
  - Paralysis [Recovering/Resolving]
  - Wrong product administered [Recovering/Resolving]
  - Product dose confusion [Recovering/Resolving]

NARRATIVE: CASE EVENT DATE: 20250501
